FAERS Safety Report 24601605 (Version 1)
Quarter: 2024Q4

REPORT INFORMATION
  Report Type: Spontaneous
  Country: CA (occurrence: CA)
  Receive Date: 20241111
  Receipt Date: 20241111
  Transmission Date: 20250114
  Serious: Yes (Death, Life-Threatening, Hospitalization, Disabling, Congenital Anomaly, Other)
  Sender: Haleon PLC
  Company Number: CA-SANDOZ-SDZ2024CA064277

PATIENT
  Age: 40 Year
  Sex: Female

DRUGS (451)
  1. ACETAMINOPHEN [Suspect]
     Active Substance: ACETAMINOPHEN
     Indication: Rheumatoid arthritis
     Route: 065
  2. ACETAMINOPHEN [Suspect]
     Active Substance: ACETAMINOPHEN
     Route: 065
  3. ACETAMINOPHEN [Suspect]
     Active Substance: ACETAMINOPHEN
     Route: 065
  4. ACETAMINOPHEN [Suspect]
     Active Substance: ACETAMINOPHEN
     Route: 065
  5. ACETAMINOPHEN [Suspect]
     Active Substance: ACETAMINOPHEN
     Route: 065
  6. ACETAMINOPHEN [Suspect]
     Active Substance: ACETAMINOPHEN
     Route: 065
  7. ACETAMINOPHEN [Suspect]
     Active Substance: ACETAMINOPHEN
     Route: 065
  8. ACETAMINOPHEN [Suspect]
     Active Substance: ACETAMINOPHEN
     Route: 065
  9. ACETAMINOPHEN [Suspect]
     Active Substance: ACETAMINOPHEN
     Route: 065
  10. ACETAMINOPHEN [Suspect]
     Active Substance: ACETAMINOPHEN
     Route: 065
  11. ACETAMINOPHEN [Suspect]
     Active Substance: ACETAMINOPHEN
     Route: 065
  12. ACETAMINOPHEN [Suspect]
     Active Substance: ACETAMINOPHEN
     Route: 065
  13. ACETAMINOPHEN [Suspect]
     Active Substance: ACETAMINOPHEN
     Route: 065
  14. PHTHALYLSULFATHIAZOLE [Suspect]
     Active Substance: PHTHALYLSULFATHIAZOLE
     Indication: Rheumatoid arthritis
     Route: 048
  15. PHTHALYLSULFATHIAZOLE [Suspect]
     Active Substance: PHTHALYLSULFATHIAZOLE
     Route: 065
  16. PHTHALYLSULFATHIAZOLE [Suspect]
     Active Substance: PHTHALYLSULFATHIAZOLE
     Route: 048
  17. PHTHALYLSULFATHIAZOLE [Suspect]
     Active Substance: PHTHALYLSULFATHIAZOLE
     Route: 065
  18. PHTHALYLSULFATHIAZOLE [Suspect]
     Active Substance: PHTHALYLSULFATHIAZOLE
     Route: 065
  19. PHTHALYLSULFATHIAZOLE [Suspect]
     Active Substance: PHTHALYLSULFATHIAZOLE
     Route: 042
  20. PHTHALYLSULFATHIAZOLE [Suspect]
     Active Substance: PHTHALYLSULFATHIAZOLE
     Route: 065
  21. PHTHALYLSULFATHIAZOLE [Suspect]
     Active Substance: PHTHALYLSULFATHIAZOLE
     Route: 065
  22. PHTHALYLSULFATHIAZOLE [Suspect]
     Active Substance: PHTHALYLSULFATHIAZOLE
     Route: 058
  23. METHOTREXATE [Suspect]
     Active Substance: METHOTREXATE
     Indication: Rheumatoid arthritis
     Route: 048
  24. METHOTREXATE [Suspect]
     Active Substance: METHOTREXATE
     Route: 048
  25. METHOTREXATE [Suspect]
     Active Substance: METHOTREXATE
     Route: 065
  26. METHOTREXATE [Suspect]
     Active Substance: METHOTREXATE
     Route: 065
  27. METHOTREXATE [Suspect]
     Active Substance: METHOTREXATE
     Route: 065
  28. METHOTREXATE [Suspect]
     Active Substance: METHOTREXATE
     Route: 058
  29. METHOTREXATE [Suspect]
     Active Substance: METHOTREXATE
     Route: 013
  30. METHOTREXATE [Suspect]
     Active Substance: METHOTREXATE
     Route: 048
  31. METHOTREXATE [Suspect]
     Active Substance: METHOTREXATE
     Route: 048
  32. METHOTREXATE [Suspect]
     Active Substance: METHOTREXATE
     Route: 048
  33. METHOTREXATE [Suspect]
     Active Substance: METHOTREXATE
     Route: 048
  34. METHOTREXATE [Suspect]
     Active Substance: METHOTREXATE
     Route: 048
  35. METHOTREXATE [Suspect]
     Active Substance: METHOTREXATE
     Route: 048
  36. METHOTREXATE [Suspect]
     Active Substance: METHOTREXATE
     Route: 013
  37. METHOTREXATE [Suspect]
     Active Substance: METHOTREXATE
     Route: 048
  38. METHOTREXATE [Suspect]
     Active Substance: METHOTREXATE
     Route: 048
  39. METHOTREXATE [Suspect]
     Active Substance: METHOTREXATE
     Route: 058
  40. METHOTREXATE [Suspect]
     Active Substance: METHOTREXATE
     Route: 048
  41. METHOTREXATE [Suspect]
     Active Substance: METHOTREXATE
     Route: 048
  42. METHOTREXATE [Suspect]
     Active Substance: METHOTREXATE
     Route: 065
  43. METHOTREXATE [Suspect]
     Active Substance: METHOTREXATE
     Route: 016
  44. METHOTREXATE [Suspect]
     Active Substance: METHOTREXATE
     Route: 048
  45. LEFLUNOMIDE [Suspect]
     Active Substance: LEFLUNOMIDE
     Indication: Rheumatoid arthritis
     Route: 065
  46. LEFLUNOMIDE [Suspect]
     Active Substance: LEFLUNOMIDE
     Route: 065
  47. LEFLUNOMIDE [Suspect]
     Active Substance: LEFLUNOMIDE
     Route: 065
  48. LEFLUNOMIDE [Suspect]
     Active Substance: LEFLUNOMIDE
     Route: 048
  49. LEFLUNOMIDE [Suspect]
     Active Substance: LEFLUNOMIDE
     Route: 048
  50. LEFLUNOMIDE [Suspect]
     Active Substance: LEFLUNOMIDE
     Route: 065
  51. GOLD [Suspect]
     Active Substance: GOLD
     Indication: Product used for unknown indication
     Route: 065
  52. SIMPONI [Suspect]
     Active Substance: GOLIMUMAB
     Indication: Product used for unknown indication
     Route: 058
  53. SIMPONI [Suspect]
     Active Substance: GOLIMUMAB
     Route: 065
  54. SIMPONI [Suspect]
     Active Substance: GOLIMUMAB
     Route: 058
  55. SIMPONI [Suspect]
     Active Substance: GOLIMUMAB
     Route: 065
  56. SIMPONI [Suspect]
     Active Substance: GOLIMUMAB
     Route: 065
  57. ORENCIA [Suspect]
     Active Substance: ABATACEPT
     Indication: Rheumatoid arthritis
     Route: 065
  58. ORENCIA [Suspect]
     Active Substance: ABATACEPT
     Route: 042
  59. ORENCIA [Suspect]
     Active Substance: ABATACEPT
     Route: 042
  60. ORENCIA [Suspect]
     Active Substance: ABATACEPT
     Route: 058
  61. ORENCIA [Suspect]
     Active Substance: ABATACEPT
     Route: 065
  62. ORENCIA [Suspect]
     Active Substance: ABATACEPT
     Route: 065
  63. ORENCIA [Suspect]
     Active Substance: ABATACEPT
     Route: 042
  64. ORENCIA [Suspect]
     Active Substance: ABATACEPT
     Route: 042
  65. ORENCIA [Suspect]
     Active Substance: ABATACEPT
     Route: 065
  66. ORENCIA [Suspect]
     Active Substance: ABATACEPT
     Route: 065
  67. ORENCIA [Suspect]
     Active Substance: ABATACEPT
     Route: 065
  68. ORENCIA [Suspect]
     Active Substance: ABATACEPT
     Route: 065
  69. OXYCODONE [Suspect]
     Active Substance: OXYCODONE
     Indication: Product used for unknown indication
     Route: 065
  70. DICLOFENAC [Suspect]
     Active Substance: DICLOFENAC
     Indication: Product used for unknown indication
     Route: 065
  71. DICLOFENAC [Suspect]
     Active Substance: DICLOFENAC
     Route: 065
  72. MYRBETRIQ [Suspect]
     Active Substance: MIRABEGRON
     Indication: Product used for unknown indication
     Route: 065
  73. MYRBETRIQ [Suspect]
     Active Substance: MIRABEGRON
     Route: 065
  74. MYRBETRIQ [Suspect]
     Active Substance: MIRABEGRON
     Route: 065
  75. SULFASALAZINE [Suspect]
     Active Substance: SULFASALAZINE
     Indication: Rheumatoid arthritis
     Route: 065
  76. LAMICTAL [Suspect]
     Active Substance: LAMOTRIGINE
     Indication: Product used for unknown indication
     Route: 048
  77. LAMICTAL [Suspect]
     Active Substance: LAMOTRIGINE
     Route: 048
  78. LAMICTAL [Suspect]
     Active Substance: LAMOTRIGINE
     Route: 048
  79. LAMICTAL [Suspect]
     Active Substance: LAMOTRIGINE
     Route: 048
  80. LAMICTAL [Suspect]
     Active Substance: LAMOTRIGINE
     Route: 048
  81. LAMICTAL [Suspect]
     Active Substance: LAMOTRIGINE
     Route: 048
  82. NUCALA [Suspect]
     Active Substance: MEPOLIZUMAB
     Indication: Product used for unknown indication
     Route: 065
  83. ARAVA [Suspect]
     Active Substance: LEFLUNOMIDE
     Indication: Rheumatoid arthritis
     Route: 048
  84. ARAVA [Suspect]
     Active Substance: LEFLUNOMIDE
     Route: 065
  85. ARAVA [Suspect]
     Active Substance: LEFLUNOMIDE
     Route: 065
  86. ARAVA [Suspect]
     Active Substance: LEFLUNOMIDE
     Route: 065
  87. ARAVA [Suspect]
     Active Substance: LEFLUNOMIDE
     Route: 048
  88. ARAVA [Suspect]
     Active Substance: LEFLUNOMIDE
     Route: 065
  89. DICLOFENAC DIETHYLAMINE [Suspect]
     Active Substance: DICLOFENAC DIETHYLAMINE
     Indication: Product used for unknown indication
     Route: 058
  90. CANDESARTAN [Suspect]
     Active Substance: CANDESARTAN
     Indication: Migraine
     Route: 048
  91. METHYLPREDNISOLONE [Suspect]
     Active Substance: METHYLPREDNISOLONE
     Indication: Product used for unknown indication
     Route: 065
  92. TRAMADOL HYDROCHLORIDE [Suspect]
     Active Substance: TRAMADOL HYDROCHLORIDE
     Indication: Rheumatoid arthritis
     Route: 014
  93. TRAMADOL HYDROCHLORIDE [Suspect]
     Active Substance: TRAMADOL HYDROCHLORIDE
     Route: 065
  94. CERTOLIZUMAB PEGOL [Suspect]
     Active Substance: CERTOLIZUMAB PEGOL
     Indication: Product used for unknown indication
     Route: 058
  95. CERTOLIZUMAB PEGOL [Suspect]
     Active Substance: CERTOLIZUMAB PEGOL
     Route: 058
  96. CERTOLIZUMAB PEGOL [Suspect]
     Active Substance: CERTOLIZUMAB PEGOL
     Route: 058
  97. CERTOLIZUMAB PEGOL [Suspect]
     Active Substance: CERTOLIZUMAB PEGOL
     Route: 065
  98. CERTOLIZUMAB PEGOL [Suspect]
     Active Substance: CERTOLIZUMAB PEGOL
     Route: 065
  99. CERTOLIZUMAB PEGOL [Suspect]
     Active Substance: CERTOLIZUMAB PEGOL
     Route: 065
  100. USTEKINUMAB [Suspect]
     Active Substance: USTEKINUMAB
     Indication: Product used for unknown indication
     Route: 058
  101. USTEKINUMAB [Suspect]
     Active Substance: USTEKINUMAB
     Route: 065
  102. USTEKINUMAB [Suspect]
     Active Substance: USTEKINUMAB
     Route: 058
  103. METFORMIN HYDROCHLORIDE [Suspect]
     Active Substance: METFORMIN HYDROCHLORIDE
     Indication: Product used for unknown indication
     Route: 042
  104. PREDNISONE [Suspect]
     Active Substance: PREDNISONE
     Indication: Rheumatoid arthritis
     Route: 065
  105. PREDNISONE [Suspect]
     Active Substance: PREDNISONE
     Route: 048
  106. PREDNISONE [Suspect]
     Active Substance: PREDNISONE
     Route: 065
  107. PREDNISONE [Suspect]
     Active Substance: PREDNISONE
     Route: 065
  108. PREDNISONE [Suspect]
     Active Substance: PREDNISONE
     Route: 065
  109. PREDNISONE [Suspect]
     Active Substance: PREDNISONE
     Route: 065
  110. PREDNISONE [Suspect]
     Active Substance: PREDNISONE
     Route: 065
  111. PREDNISONE [Suspect]
     Active Substance: PREDNISONE
     Route: 048
  112. PREDNISONE [Suspect]
     Active Substance: PREDNISONE
     Route: 065
  113. PREDNISONE [Suspect]
     Active Substance: PREDNISONE
     Route: 065
  114. PREDNISONE [Suspect]
     Active Substance: PREDNISONE
     Route: 048
  115. PREDNISONE [Suspect]
     Active Substance: PREDNISONE
     Route: 065
  116. PREDNISONE [Suspect]
     Active Substance: PREDNISONE
     Route: 065
  117. ALENDRONIC ACID [Suspect]
     Active Substance: ALENDRONIC ACID
     Indication: Rheumatoid arthritis
     Route: 048
  118. ALENDRONIC ACID [Suspect]
     Active Substance: ALENDRONIC ACID
     Route: 065
  119. ALENDRONIC ACID [Suspect]
     Active Substance: ALENDRONIC ACID
     Route: 016
  120. ALENDRONIC ACID [Suspect]
     Active Substance: ALENDRONIC ACID
     Route: 065
  121. ALENDRONIC ACID [Suspect]
     Active Substance: ALENDRONIC ACID
     Route: 065
  122. ALENDRONIC ACID [Suspect]
     Active Substance: ALENDRONIC ACID
     Route: 065
  123. ALENDRONIC ACID [Suspect]
     Active Substance: ALENDRONIC ACID
     Route: 048
  124. ALENDRONIC ACID [Suspect]
     Active Substance: ALENDRONIC ACID
     Route: 065
  125. ALENDRONIC ACID [Suspect]
     Active Substance: ALENDRONIC ACID
     Route: 048
  126. ALENDRONIC ACID [Suspect]
     Active Substance: ALENDRONIC ACID
     Route: 065
  127. ALENDRONIC ACID [Suspect]
     Active Substance: ALENDRONIC ACID
     Route: 065
  128. BERINERT [Suspect]
     Active Substance: HUMAN C1-ESTERASE INHIBITOR
     Indication: Product used for unknown indication
     Route: 065
  129. PREDNISONE [Suspect]
     Active Substance: PREDNISONE
     Indication: Product used for unknown indication
     Route: 048
  130. PREDNISONE [Suspect]
     Active Substance: PREDNISONE
     Route: 048
  131. PREDNISONE [Suspect]
     Active Substance: PREDNISONE
     Route: 065
  132. PREDNISONE [Suspect]
     Active Substance: PREDNISONE
     Route: 048
  133. PREDNISONE [Suspect]
     Active Substance: PREDNISONE
     Route: 065
  134. PREDNISONE [Suspect]
     Active Substance: PREDNISONE
     Route: 048
  135. PREDNISONE [Suspect]
     Active Substance: PREDNISONE
     Route: 065
  136. PREDNISONE [Suspect]
     Active Substance: PREDNISONE
     Route: 065
  137. PREDNISONE [Suspect]
     Active Substance: PREDNISONE
     Route: 048
  138. CALCIUM ASCORBATE [Suspect]
     Active Substance: CALCIUM ASCORBATE
     Indication: Product used for unknown indication
     Route: 065
  139. CALCIUM ASCORBATE [Suspect]
     Active Substance: CALCIUM ASCORBATE
     Route: 065
  140. HYDROCORTISONE [Suspect]
     Active Substance: HYDROCORTISONE
     Indication: Product used for unknown indication
     Route: 065
  141. MINOCYCLINE HYDROCHLORIDE [Suspect]
     Active Substance: MINOCYCLINE HYDROCHLORIDE
     Indication: Product used for unknown indication
     Route: 065
  142. MINOCYCLINE HYDROCHLORIDE [Suspect]
     Active Substance: MINOCYCLINE HYDROCHLORIDE
     Route: 030
  143. NAPROXEN SODIUM [Suspect]
     Active Substance: NAPROXEN SODIUM
     Indication: Product used for unknown indication
     Route: 065
  144. HYDROXYCHLOROQUINE SULFATE [Suspect]
     Active Substance: HYDROXYCHLOROQUINE SULFATE
     Indication: Rheumatoid arthritis
     Route: 065
  145. HYDROXYCHLOROQUINE SULFATE [Suspect]
     Active Substance: HYDROXYCHLOROQUINE SULFATE
     Route: 048
  146. HYDROXYCHLOROQUINE SULFATE [Suspect]
     Active Substance: HYDROXYCHLOROQUINE SULFATE
     Route: 048
  147. HYDROXYCHLOROQUINE SULFATE [Suspect]
     Active Substance: HYDROXYCHLOROQUINE SULFATE
     Route: 065
  148. HYDROXYCHLOROQUINE SULFATE [Suspect]
     Active Substance: HYDROXYCHLOROQUINE SULFATE
     Route: 048
  149. HYDROXYCHLOROQUINE SULFATE [Suspect]
     Active Substance: HYDROXYCHLOROQUINE SULFATE
     Route: 065
  150. HYDROXYCHLOROQUINE SULFATE [Suspect]
     Active Substance: HYDROXYCHLOROQUINE SULFATE
     Route: 065
  151. HYDROXYCHLOROQUINE SULFATE [Suspect]
     Active Substance: HYDROXYCHLOROQUINE SULFATE
     Route: 065
  152. HYDROXYCHLOROQUINE SULFATE [Suspect]
     Active Substance: HYDROXYCHLOROQUINE SULFATE
     Route: 065
  153. HYDROXYCHLOROQUINE SULFATE [Suspect]
     Active Substance: HYDROXYCHLOROQUINE SULFATE
     Route: 065
  154. HUMIRA [Suspect]
     Active Substance: ADALIMUMAB
     Indication: Rheumatoid arthritis
     Route: 058
  155. HUMIRA [Suspect]
     Active Substance: ADALIMUMAB
     Route: 065
  156. HUMIRA [Suspect]
     Active Substance: ADALIMUMAB
     Route: 065
  157. HUMIRA [Suspect]
     Active Substance: ADALIMUMAB
     Route: 058
  158. HUMIRA [Suspect]
     Active Substance: ADALIMUMAB
     Route: 058
  159. HUMIRA [Suspect]
     Active Substance: ADALIMUMAB
     Route: 058
  160. NAPROXEN [Suspect]
     Active Substance: NAPROXEN
     Indication: Product used for unknown indication
     Route: 065
  161. ADALIMUMAB [Suspect]
     Active Substance: ADALIMUMAB
     Indication: Rheumatoid arthritis
     Route: 058
  162. ADALIMUMAB [Suspect]
     Active Substance: ADALIMUMAB
     Route: 058
  163. ADALIMUMAB [Suspect]
     Active Substance: ADALIMUMAB
     Route: 058
  164. CIMZIA [Suspect]
     Active Substance: CERTOLIZUMAB PEGOL
     Indication: Rheumatoid arthritis
     Route: 058
  165. CIMZIA [Suspect]
     Active Substance: CERTOLIZUMAB PEGOL
     Indication: Psoriasis
     Route: 058
  166. CIMZIA [Suspect]
     Active Substance: CERTOLIZUMAB PEGOL
     Route: 065
  167. CIMZIA [Suspect]
     Active Substance: CERTOLIZUMAB PEGOL
     Route: 058
  168. CIMZIA [Suspect]
     Active Substance: CERTOLIZUMAB PEGOL
     Route: 058
  169. CIMZIA [Suspect]
     Active Substance: CERTOLIZUMAB PEGOL
     Route: 065
  170. CIMZIA [Suspect]
     Active Substance: CERTOLIZUMAB PEGOL
     Route: 058
  171. CIMZIA [Suspect]
     Active Substance: CERTOLIZUMAB PEGOL
     Route: 058
  172. INFLIXIMAB [Suspect]
     Active Substance: INFLIXIMAB
     Indication: Product used for unknown indication
     Route: 042
  173. INFLIXIMAB [Suspect]
     Active Substance: INFLIXIMAB
     Route: 042
  174. INFLIXIMAB [Suspect]
     Active Substance: INFLIXIMAB
     Route: 042
  175. INFLIXIMAB [Suspect]
     Active Substance: INFLIXIMAB
     Route: 042
  176. INFLIXIMAB [Suspect]
     Active Substance: INFLIXIMAB
     Route: 042
  177. INFLIXIMAB [Suspect]
     Active Substance: INFLIXIMAB
     Route: 042
  178. INFLIXIMAB [Suspect]
     Active Substance: INFLIXIMAB
     Route: 042
  179. INFLIXIMAB [Suspect]
     Active Substance: INFLIXIMAB
     Route: 042
  180. INFLIXIMAB [Suspect]
     Active Substance: INFLIXIMAB
     Route: 058
  181. AIMOVIG [Suspect]
     Active Substance: ERENUMAB\ERENUMAB-AOOE
     Indication: Product used for unknown indication
     Route: 065
  182. AIMOVIG [Suspect]
     Active Substance: ERENUMAB\ERENUMAB-AOOE
     Route: 065
  183. TOCILIZUMAB [Suspect]
     Active Substance: TOCILIZUMAB
     Indication: Rheumatoid arthritis
     Route: 042
  184. TOCILIZUMAB [Suspect]
     Active Substance: TOCILIZUMAB
     Route: 058
  185. TOCILIZUMAB [Suspect]
     Active Substance: TOCILIZUMAB
     Route: 058
  186. TOCILIZUMAB [Suspect]
     Active Substance: TOCILIZUMAB
     Route: 065
  187. TOCILIZUMAB [Suspect]
     Active Substance: TOCILIZUMAB
     Route: 065
  188. TOCILIZUMAB [Suspect]
     Active Substance: TOCILIZUMAB
     Route: 065
  189. TOCILIZUMAB [Suspect]
     Active Substance: TOCILIZUMAB
     Route: 065
  190. TOCILIZUMAB [Suspect]
     Active Substance: TOCILIZUMAB
     Route: 065
  191. ALENDRONATE SODIUM\CHOLECALCIFEROL [Suspect]
     Active Substance: ALENDRONATE SODIUM\CHOLECALCIFEROL
     Indication: Product used for unknown indication
     Route: 065
  192. TOFACITINIB CITRATE [Suspect]
     Active Substance: TOFACITINIB CITRATE
     Indication: Rheumatoid arthritis
     Route: 065
  193. TOFACITINIB CITRATE [Suspect]
     Active Substance: TOFACITINIB CITRATE
     Route: 048
  194. GOLD SODIUM THIOMALATE [Suspect]
     Active Substance: GOLD SODIUM THIOMALATE
     Indication: Product used for unknown indication
     Route: 048
  195. GOLD SODIUM THIOMALATE [Suspect]
     Active Substance: GOLD SODIUM THIOMALATE
     Route: 065
  196. GOLD SODIUM THIOMALATE [Suspect]
     Active Substance: GOLD SODIUM THIOMALATE
     Route: 065
  197. CETIRIZINE HYDROCHLORIDE\PSEUDOEPHEDRINE HYDROCHLORIDE [Suspect]
     Active Substance: CETIRIZINE HYDROCHLORIDE\PSEUDOEPHEDRINE HYDROCHLORIDE
     Indication: Rheumatoid arthritis
     Route: 065
  198. CETIRIZINE HYDROCHLORIDE\PSEUDOEPHEDRINE HYDROCHLORIDE [Suspect]
     Active Substance: CETIRIZINE HYDROCHLORIDE\PSEUDOEPHEDRINE HYDROCHLORIDE
     Route: 065
  199. CETIRIZINE HYDROCHLORIDE\PSEUDOEPHEDRINE HYDROCHLORIDE [Suspect]
     Active Substance: CETIRIZINE HYDROCHLORIDE\PSEUDOEPHEDRINE HYDROCHLORIDE
     Route: 065
  200. CETIRIZINE HYDROCHLORIDE\PSEUDOEPHEDRINE HYDROCHLORIDE [Suspect]
     Active Substance: CETIRIZINE HYDROCHLORIDE\PSEUDOEPHEDRINE HYDROCHLORIDE
     Route: 042
  201. CETIRIZINE HYDROCHLORIDE\PSEUDOEPHEDRINE HYDROCHLORIDE [Suspect]
     Active Substance: CETIRIZINE HYDROCHLORIDE\PSEUDOEPHEDRINE HYDROCHLORIDE
     Route: 065
  202. CETIRIZINE HYDROCHLORIDE\PSEUDOEPHEDRINE HYDROCHLORIDE [Suspect]
     Active Substance: CETIRIZINE HYDROCHLORIDE\PSEUDOEPHEDRINE HYDROCHLORIDE
     Route: 065
  203. CETIRIZINE HYDROCHLORIDE\PSEUDOEPHEDRINE HYDROCHLORIDE [Suspect]
     Active Substance: CETIRIZINE HYDROCHLORIDE\PSEUDOEPHEDRINE HYDROCHLORIDE
     Route: 065
  204. CETIRIZINE HYDROCHLORIDE\PSEUDOEPHEDRINE HYDROCHLORIDE [Suspect]
     Active Substance: CETIRIZINE HYDROCHLORIDE\PSEUDOEPHEDRINE HYDROCHLORIDE
     Route: 065
  205. COSENTYX [Suspect]
     Active Substance: SECUKINUMAB
     Indication: Rheumatoid arthritis
     Route: 065
  206. COSENTYX [Suspect]
     Active Substance: SECUKINUMAB
     Indication: Psoriatic arthropathy
     Route: 065
  207. COSENTYX [Suspect]
     Active Substance: SECUKINUMAB
     Route: 065
  208. COSENTYX [Suspect]
     Active Substance: SECUKINUMAB
     Dosage: COSENTYX PRE FILLED SYRINGE (DEVICE)
     Route: 065
  209. CORTISONE ACETATE [Suspect]
     Active Substance: CORTISONE ACETATE
     Indication: Rheumatoid arthritis
     Route: 065
  210. CORTISONE ACETATE [Suspect]
     Active Substance: CORTISONE ACETATE
     Route: 048
  211. CORTISONE ACETATE [Suspect]
     Active Substance: CORTISONE ACETATE
     Route: 065
  212. CORTISONE ACETATE [Suspect]
     Active Substance: CORTISONE ACETATE
     Route: 048
  213. CORTISONE ACETATE [Suspect]
     Active Substance: CORTISONE ACETATE
     Route: 048
  214. CALTRATE [Suspect]
     Active Substance: CALCIUM CARBONATE
     Indication: Product used for unknown indication
     Route: 065
  215. CALTRATE [Suspect]
     Active Substance: CALCIUM CARBONATE
     Route: 065
  216. FLUMETHASONE PIVALATE [Suspect]
     Active Substance: FLUMETHASONE PIVALATE
     Indication: Product used for unknown indication
     Route: 058
  217. FLUMETHASONE PIVALATE [Suspect]
     Active Substance: FLUMETHASONE PIVALATE
     Route: 065
  218. FLUMETHASONE [Suspect]
     Active Substance: FLUMETHASONE
     Indication: Product used for unknown indication
     Route: 065
  219. PREPARATION H NOS [Suspect]
     Active Substance: UNSPECIFIED INGREDIENT
     Indication: Rheumatoid arthritis
     Route: 065
  220. ACETAMINOPHEN\CODEINE PHOSPHATE [Suspect]
     Active Substance: ACETAMINOPHEN\CODEINE PHOSPHATE
     Indication: Product used for unknown indication
     Route: 065
  221. AZATHIOPRINE SODIUM [Suspect]
     Active Substance: AZATHIOPRINE SODIUM
     Indication: Product used for unknown indication
     Route: 065
  222. HYDROCORTISONE [Suspect]
     Active Substance: HYDROCORTISONE
     Indication: Product used for unknown indication
     Route: 065
  223. PHENYLEPHRINE HYDROCHLORIDE [Suspect]
     Active Substance: PHENYLEPHRINE HYDROCHLORIDE
     Indication: Rheumatoid arthritis
     Route: 065
  224. PHENYLEPHRINE HYDROCHLORIDE [Suspect]
     Active Substance: PHENYLEPHRINE HYDROCHLORIDE
     Route: 065
  225. ERELZI [Suspect]
     Active Substance: ETANERCEPT-SZZS
     Indication: Rheumatoid arthritis
     Route: 065
  226. ERELZI [Suspect]
     Active Substance: ETANERCEPT-SZZS
     Route: 058
  227. ERELZI [Suspect]
     Active Substance: ETANERCEPT-SZZS
     Route: 065
  228. ERELZI [Suspect]
     Active Substance: ETANERCEPT-SZZS
     Route: 058
  229. DOMPERIDONE MALEATE [Suspect]
     Active Substance: DOMPERIDONE MALEATE
     Indication: Product used for unknown indication
     Route: 065
  230. DOMPERIDONE MALEATE [Suspect]
     Active Substance: DOMPERIDONE MALEATE
     Route: 065
  231. CELEBREX [Suspect]
     Active Substance: CELECOXIB
     Indication: Product used for unknown indication
     Route: 048
  232. CELEBREX [Suspect]
     Active Substance: CELECOXIB
     Route: 065
  233. CELEBREX [Suspect]
     Active Substance: CELECOXIB
     Route: 065
  234. CELEBREX [Suspect]
     Active Substance: CELECOXIB
     Route: 065
  235. BUTRANS [Suspect]
     Active Substance: BUPRENORPHINE
     Indication: Product used for unknown indication
     Route: 065
  236. BUTRANS [Suspect]
     Active Substance: BUPRENORPHINE
     Route: 065
  237. APREMILAST [Suspect]
     Active Substance: APREMILAST
     Indication: Rheumatoid arthritis
     Route: 065
  238. APREMILAST [Suspect]
     Active Substance: APREMILAST
     Route: 065
  239. ENBREL [Suspect]
     Active Substance: ETANERCEPT
     Indication: Rheumatoid arthritis
     Route: 065
  240. ENBREL [Suspect]
     Active Substance: ETANERCEPT
     Route: 065
  241. ENBREL [Suspect]
     Active Substance: ETANERCEPT
     Route: 058
  242. ENBREL [Suspect]
     Active Substance: ETANERCEPT
     Route: 065
  243. ENBREL [Suspect]
     Active Substance: ETANERCEPT
     Route: 058
  244. ENBREL [Suspect]
     Active Substance: ETANERCEPT
     Route: 058
  245. ENBREL [Suspect]
     Active Substance: ETANERCEPT
     Route: 065
  246. ENBREL [Suspect]
     Active Substance: ETANERCEPT
     Route: 058
  247. TOFACITINIB [Suspect]
     Active Substance: TOFACITINIB
     Indication: Rheumatoid arthritis
     Route: 065
  248. ACTEMRA [Suspect]
     Active Substance: TOCILIZUMAB
     Indication: Abdominal discomfort
     Route: 042
  249. ACTEMRA [Suspect]
     Active Substance: TOCILIZUMAB
     Indication: Rheumatoid arthritis
     Route: 048
  250. ACTEMRA [Suspect]
     Active Substance: TOCILIZUMAB
     Route: 042
  251. ACTEMRA [Suspect]
     Active Substance: TOCILIZUMAB
     Route: 042
  252. ACTEMRA [Suspect]
     Active Substance: TOCILIZUMAB
     Route: 058
  253. ACTEMRA [Suspect]
     Active Substance: TOCILIZUMAB
     Route: 065
  254. ACTEMRA [Suspect]
     Active Substance: TOCILIZUMAB
     Route: 042
  255. ACTEMRA [Suspect]
     Active Substance: TOCILIZUMAB
     Route: 058
  256. ACTEMRA [Suspect]
     Active Substance: TOCILIZUMAB
     Route: 058
  257. ACTEMRA [Suspect]
     Active Substance: TOCILIZUMAB
     Route: 065
  258. ACTEMRA [Suspect]
     Active Substance: TOCILIZUMAB
     Route: 058
  259. ACTEMRA [Suspect]
     Active Substance: TOCILIZUMAB
     Route: 016
  260. ACTEMRA [Suspect]
     Active Substance: TOCILIZUMAB
     Route: 058
  261. ACTEMRA [Suspect]
     Active Substance: TOCILIZUMAB
     Route: 065
  262. ACTEMRA [Suspect]
     Active Substance: TOCILIZUMAB
     Route: 058
  263. ACTEMRA [Suspect]
     Active Substance: TOCILIZUMAB
     Route: 058
  264. ACTEMRA [Suspect]
     Active Substance: TOCILIZUMAB
     Route: 065
  265. ACTEMRA [Suspect]
     Active Substance: TOCILIZUMAB
     Route: 042
  266. ACTEMRA [Suspect]
     Active Substance: TOCILIZUMAB
     Route: 065
  267. BOTULINUM TOXIN TYPE A [Suspect]
     Active Substance: BOTULINUM TOXIN TYPE A
     Indication: Product used for unknown indication
     Route: 065
  268. MINOCYCLINE [Suspect]
     Active Substance: MINOCYCLINE HYDROCHLORIDE
     Indication: Product used for unknown indication
     Route: 065
  269. RITUXIMAB [Suspect]
     Active Substance: RITUXIMAB
     Indication: Rheumatoid arthritis
     Route: 042
  270. RITUXIMAB [Suspect]
     Active Substance: RITUXIMAB
     Route: 065
  271. RITUXIMAB [Suspect]
     Active Substance: RITUXIMAB
     Route: 043
  272. RITUXIMAB [Suspect]
     Active Substance: RITUXIMAB
     Route: 042
  273. RITUXIMAB [Suspect]
     Active Substance: RITUXIMAB
     Route: 058
  274. RITUXIMAB [Suspect]
     Active Substance: RITUXIMAB
     Route: 065
  275. RITUXIMAB [Suspect]
     Active Substance: RITUXIMAB
     Route: 042
  276. RITUXIMAB [Suspect]
     Active Substance: RITUXIMAB
     Route: 016
  277. RITUXIMAB [Suspect]
     Active Substance: RITUXIMAB
     Route: 016
  278. RITUXIMAB [Suspect]
     Active Substance: RITUXIMAB
     Route: 042
  279. RITUXIMAB [Suspect]
     Active Substance: RITUXIMAB
     Route: 065
  280. RITUXIMAB [Suspect]
     Active Substance: RITUXIMAB
     Route: 042
  281. RITUXIMAB [Suspect]
     Active Substance: RITUXIMAB
     Route: 016
  282. RITUXIMAB [Suspect]
     Active Substance: RITUXIMAB
     Route: 042
  283. RITUXIMAB [Suspect]
     Active Substance: RITUXIMAB
     Route: 065
  284. RITUXIMAB [Suspect]
     Active Substance: RITUXIMAB
     Route: 042
  285. RITUXIMAB [Suspect]
     Active Substance: RITUXIMAB
     Route: 043
  286. RITUXIMAB [Suspect]
     Active Substance: RITUXIMAB
     Route: 065
  287. RITUXIMAB [Suspect]
     Active Substance: RITUXIMAB
     Route: 065
  288. RITUXIMAB [Suspect]
     Active Substance: RITUXIMAB
     Route: 058
  289. PANADOL [Suspect]
     Active Substance: ACETAMINOPHEN
     Indication: Rheumatoid arthritis
     Route: 065
  290. PANADOL [Suspect]
     Active Substance: ACETAMINOPHEN
     Route: 065
  291. PANADOL [Suspect]
     Active Substance: ACETAMINOPHEN
     Route: 065
  292. PANADOL [Suspect]
     Active Substance: ACETAMINOPHEN
     Route: 065
  293. PANADOL [Suspect]
     Active Substance: ACETAMINOPHEN
     Route: 065
  294. PANADOL [Suspect]
     Active Substance: ACETAMINOPHEN
     Route: 065
  295. PANADOL [Suspect]
     Active Substance: ACETAMINOPHEN
     Route: 065
  296. CETIRIZINE HYDROCHLORIDE [Suspect]
     Active Substance: CETIRIZINE HYDROCHLORIDE
     Indication: Product used for unknown indication
     Route: 065
  297. CETIRIZINE HYDROCHLORIDE [Suspect]
     Active Substance: CETIRIZINE HYDROCHLORIDE
     Route: 016
  298. CETIRIZINE HYDROCHLORIDE [Suspect]
     Active Substance: CETIRIZINE HYDROCHLORIDE
     Route: 065
  299. CETIRIZINE HYDROCHLORIDE [Suspect]
     Active Substance: CETIRIZINE HYDROCHLORIDE
     Route: 065
  300. CETIRIZINE HYDROCHLORIDE [Suspect]
     Active Substance: CETIRIZINE HYDROCHLORIDE
     Route: 065
  301. CETIRIZINE HYDROCHLORIDE [Suspect]
     Active Substance: CETIRIZINE HYDROCHLORIDE
     Route: 048
  302. CETIRIZINE HYDROCHLORIDE [Suspect]
     Active Substance: CETIRIZINE HYDROCHLORIDE
     Route: 065
  303. CETIRIZINE HYDROCHLORIDE [Suspect]
     Active Substance: CETIRIZINE HYDROCHLORIDE
     Route: 065
  304. CETIRIZINE HYDROCHLORIDE [Suspect]
     Active Substance: CETIRIZINE HYDROCHLORIDE
     Route: 065
  305. CETIRIZINE HYDROCHLORIDE [Suspect]
     Active Substance: CETIRIZINE HYDROCHLORIDE
     Route: 065
  306. CETIRIZINE HYDROCHLORIDE [Suspect]
     Active Substance: CETIRIZINE HYDROCHLORIDE
     Route: 065
  307. CETIRIZINE HYDROCHLORIDE [Suspect]
     Active Substance: CETIRIZINE HYDROCHLORIDE
     Route: 065
  308. CETIRIZINE HYDROCHLORIDE [Suspect]
     Active Substance: CETIRIZINE HYDROCHLORIDE
     Route: 065
  309. CETIRIZINE HYDROCHLORIDE [Suspect]
     Active Substance: CETIRIZINE HYDROCHLORIDE
     Route: 065
  310. CETIRIZINE HYDROCHLORIDE [Suspect]
     Active Substance: CETIRIZINE HYDROCHLORIDE
     Route: 065
  311. CETIRIZINE HYDROCHLORIDE [Suspect]
     Active Substance: CETIRIZINE HYDROCHLORIDE
     Route: 065
  312. CETIRIZINE HYDROCHLORIDE [Suspect]
     Active Substance: CETIRIZINE HYDROCHLORIDE
     Route: 065
  313. CETIRIZINE HYDROCHLORIDE [Suspect]
     Active Substance: CETIRIZINE HYDROCHLORIDE
     Route: 048
  314. CETIRIZINE HYDROCHLORIDE [Suspect]
     Active Substance: CETIRIZINE HYDROCHLORIDE
     Route: 048
  315. CETIRIZINE HYDROCHLORIDE [Suspect]
     Active Substance: CETIRIZINE HYDROCHLORIDE
     Route: 065
  316. CETIRIZINE HYDROCHLORIDE [Suspect]
     Active Substance: CETIRIZINE HYDROCHLORIDE
     Route: 048
  317. CETIRIZINE HYDROCHLORIDE [Suspect]
     Active Substance: CETIRIZINE HYDROCHLORIDE
     Route: 065
  318. CETIRIZINE HYDROCHLORIDE [Suspect]
     Active Substance: CETIRIZINE HYDROCHLORIDE
     Route: 065
  319. CETIRIZINE HYDROCHLORIDE [Suspect]
     Active Substance: CETIRIZINE HYDROCHLORIDE
     Route: 048
  320. CETIRIZINE HYDROCHLORIDE [Suspect]
     Active Substance: CETIRIZINE HYDROCHLORIDE
     Route: 065
  321. CETIRIZINE HYDROCHLORIDE [Suspect]
     Active Substance: CETIRIZINE HYDROCHLORIDE
     Route: 065
  322. CETIRIZINE HYDROCHLORIDE [Suspect]
     Active Substance: CETIRIZINE HYDROCHLORIDE
     Route: 065
  323. CETIRIZINE HYDROCHLORIDE [Suspect]
     Active Substance: CETIRIZINE HYDROCHLORIDE
     Route: 065
  324. CETIRIZINE HYDROCHLORIDE [Suspect]
     Active Substance: CETIRIZINE HYDROCHLORIDE
     Route: 065
  325. DESOXIMETASONE [Suspect]
     Active Substance: DESOXIMETASONE
     Indication: Rheumatoid arthritis
     Route: 065
  326. DESOXIMETASONE [Suspect]
     Active Substance: DESOXIMETASONE
     Route: 065
  327. DESOXIMETASONE [Suspect]
     Active Substance: DESOXIMETASONE
     Route: 065
  328. DESOXIMETASONE [Suspect]
     Active Substance: DESOXIMETASONE
     Route: 065
  329. DESOXIMETASONE [Suspect]
     Active Substance: DESOXIMETASONE
     Route: 048
  330. DESOXIMETASONE [Suspect]
     Active Substance: DESOXIMETASONE
     Route: 048
  331. DESOXIMETASONE [Suspect]
     Active Substance: DESOXIMETASONE
     Route: 048
  332. DESOXIMETASONE [Suspect]
     Active Substance: DESOXIMETASONE
     Route: 048
  333. DESOXIMETASONE [Suspect]
     Active Substance: DESOXIMETASONE
     Route: 065
  334. DESOXIMETASONE [Suspect]
     Active Substance: DESOXIMETASONE
     Route: 065
  335. DESOXIMETASONE [Suspect]
     Active Substance: DESOXIMETASONE
     Route: 058
  336. DESOXIMETASONE [Suspect]
     Active Substance: DESOXIMETASONE
     Route: 058
  337. DESOXIMETASONE [Suspect]
     Active Substance: DESOXIMETASONE
     Route: 065
  338. DESOXIMETASONE [Suspect]
     Active Substance: DESOXIMETASONE
     Route: 048
  339. DESOXIMETASONE [Suspect]
     Active Substance: DESOXIMETASONE
     Route: 048
  340. DESOXIMETASONE [Suspect]
     Active Substance: DESOXIMETASONE
     Route: 065
  341. DESOXIMETASONE [Suspect]
     Active Substance: DESOXIMETASONE
     Route: 065
  342. DESOXIMETASONE [Suspect]
     Active Substance: DESOXIMETASONE
     Route: 048
  343. DESOXIMETASONE [Suspect]
     Active Substance: DESOXIMETASONE
     Route: 048
  344. DESOXIMETASONE [Suspect]
     Active Substance: DESOXIMETASONE
     Route: 065
  345. DESOXIMETASONE [Suspect]
     Active Substance: DESOXIMETASONE
     Route: 065
  346. ACETAMINOPHEN\CODEINE PHOSPHATE [Suspect]
     Active Substance: ACETAMINOPHEN\CODEINE PHOSPHATE
     Indication: Product used for unknown indication
     Route: 065
  347. ATOMOXETINE [Suspect]
     Active Substance: ATOMOXETINE HYDROCHLORIDE
     Indication: Migraine
     Route: 065
  348. ATOMOXETINE [Suspect]
     Active Substance: ATOMOXETINE HYDROCHLORIDE
     Route: 065
  349. ATOMOXETINE [Suspect]
     Active Substance: ATOMOXETINE HYDROCHLORIDE
     Route: 065
  350. HYDROXYCHLOROQUINE [Suspect]
     Active Substance: HYDROXYCHLOROQUINE
     Indication: Rheumatoid arthritis
     Route: 016
  351. HYDROXYCHLOROQUINE [Suspect]
     Active Substance: HYDROXYCHLOROQUINE
     Route: 048
  352. HYDROXYCHLOROQUINE [Suspect]
     Active Substance: HYDROXYCHLOROQUINE
     Route: 058
  353. HYDROXYCHLOROQUINE [Suspect]
     Active Substance: HYDROXYCHLOROQUINE
     Route: 048
  354. HYDROXYCHLOROQUINE [Suspect]
     Active Substance: HYDROXYCHLOROQUINE
     Route: 058
  355. HYDROXYCHLOROQUINE [Suspect]
     Active Substance: HYDROXYCHLOROQUINE
     Route: 065
  356. HYDROXYCHLOROQUINE [Suspect]
     Active Substance: HYDROXYCHLOROQUINE
     Route: 058
  357. HYDROXYCHLOROQUINE [Suspect]
     Active Substance: HYDROXYCHLOROQUINE
     Route: 048
  358. HYDROXYCHLOROQUINE [Suspect]
     Active Substance: HYDROXYCHLOROQUINE
     Route: 065
  359. HYDROXYCHLOROQUINE [Suspect]
     Active Substance: HYDROXYCHLOROQUINE
     Route: 065
  360. HYDROXYCHLOROQUINE [Suspect]
     Active Substance: HYDROXYCHLOROQUINE
     Route: 048
  361. HYDROXYCHLOROQUINE [Suspect]
     Active Substance: HYDROXYCHLOROQUINE
     Route: 058
  362. HYDROXYCHLOROQUINE [Suspect]
     Active Substance: HYDROXYCHLOROQUINE
     Route: 065
  363. HYDROXYCHLOROQUINE [Suspect]
     Active Substance: HYDROXYCHLOROQUINE
     Route: 065
  364. HYDROXYCHLOROQUINE [Suspect]
     Active Substance: HYDROXYCHLOROQUINE
     Route: 048
  365. HYDROXYCHLOROQUINE [Suspect]
     Active Substance: HYDROXYCHLOROQUINE
     Route: 065
  366. HYDROXYCHLOROQUINE [Suspect]
     Active Substance: HYDROXYCHLOROQUINE
     Route: 065
  367. HYDROXYCHLOROQUINE [Suspect]
     Active Substance: HYDROXYCHLOROQUINE
     Route: 048
  368. HYDROXYCHLOROQUINE [Suspect]
     Active Substance: HYDROXYCHLOROQUINE
     Route: 048
  369. METHYLPREDNISOLONE SODIUM SUCCINATE [Suspect]
     Active Substance: METHYLPREDNISOLONE SODIUM SUCCINATE
     Indication: Product used for unknown indication
     Route: 065
  370. DICLOFENAC SODIUM [Suspect]
     Active Substance: DICLOFENAC SODIUM
     Indication: Product used for unknown indication
     Route: 065
  371. DICLOFENAC SODIUM [Suspect]
     Active Substance: DICLOFENAC SODIUM
     Route: 065
  372. DICLOFENAC SODIUM [Suspect]
     Active Substance: DICLOFENAC SODIUM
     Route: 058
  373. DICLOFENAC SODIUM [Suspect]
     Active Substance: DICLOFENAC SODIUM
     Route: 065
  374. STELARA [Suspect]
     Active Substance: USTEKINUMAB
     Indication: Rheumatoid arthritis
     Route: 058
  375. STELARA [Suspect]
     Active Substance: USTEKINUMAB
     Route: 065
  376. XELJANZ [Suspect]
     Active Substance: TOFACITINIB CITRATE
     Indication: Rheumatoid arthritis
     Route: 065
  377. XELJANZ [Suspect]
     Active Substance: TOFACITINIB CITRATE
     Route: 065
  378. XELJANZ [Suspect]
     Active Substance: TOFACITINIB CITRATE
     Route: 065
  379. XELJANZ [Suspect]
     Active Substance: TOFACITINIB CITRATE
     Route: 065
  380. XELJANZ [Suspect]
     Active Substance: TOFACITINIB CITRATE
     Route: 048
  381. XELJANZ [Suspect]
     Active Substance: TOFACITINIB CITRATE
     Route: 065
  382. XELJANZ [Suspect]
     Active Substance: TOFACITINIB CITRATE
     Route: 065
  383. XELJANZ [Suspect]
     Active Substance: TOFACITINIB CITRATE
     Route: 065
  384. RANITIDINE [Suspect]
     Active Substance: RANITIDINE
     Indication: Product used for unknown indication
     Route: 065
  385. OXYCODONE TEREPHTHALATE [Suspect]
     Active Substance: OXYCODONE TEREPHTHALATE
     Indication: Product used for unknown indication
     Route: 065
  386. LEFLUNOMIDE [Suspect]
     Active Substance: LEFLUNOMIDE
     Indication: Rheumatoid arthritis
     Route: 065
  387. LEFLUNOMIDE [Suspect]
     Active Substance: LEFLUNOMIDE
     Route: 048
  388. LEFLUNOMIDE [Suspect]
     Active Substance: LEFLUNOMIDE
     Route: 065
  389. RAMIPRIL [Suspect]
     Active Substance: RAMIPRIL
     Indication: Rheumatoid arthritis
     Route: 016
  390. RAMIPRIL [Suspect]
     Active Substance: RAMIPRIL
     Route: 065
  391. RAMIPRIL [Suspect]
     Active Substance: RAMIPRIL
     Route: 042
  392. GOLD SODIUM THIOMALATE [Suspect]
     Active Substance: GOLD SODIUM THIOMALATE
     Indication: Product used for unknown indication
     Route: 065
  393. REMICADE [Suspect]
     Active Substance: INFLIXIMAB
     Indication: Rheumatoid arthritis
     Route: 042
  394. REMICADE [Suspect]
     Active Substance: INFLIXIMAB
     Route: 042
  395. REMICADE [Suspect]
     Active Substance: INFLIXIMAB
     Route: 042
  396. REMICADE [Suspect]
     Active Substance: INFLIXIMAB
     Route: 065
  397. REMICADE [Suspect]
     Active Substance: INFLIXIMAB
     Route: 042
  398. REMICADE [Suspect]
     Active Substance: INFLIXIMAB
     Route: 058
  399. REMICADE [Suspect]
     Active Substance: INFLIXIMAB
     Route: 042
  400. REMICADE [Suspect]
     Active Substance: INFLIXIMAB
     Route: 058
  401. SIRUKUMAB [Suspect]
     Active Substance: SIRUKUMAB
     Indication: Product used for unknown indication
     Route: 065
  402. GOLIMUMAB [Suspect]
     Active Substance: GOLIMUMAB
     Indication: Rheumatoid arthritis
     Route: 065
  403. GOLIMUMAB [Suspect]
     Active Substance: GOLIMUMAB
     Route: 058
  404. TOPIRAMATE [Suspect]
     Active Substance: TOPIRAMATE
     Indication: Migraine
     Route: 065
  405. TOPIRAMATE [Suspect]
     Active Substance: TOPIRAMATE
     Route: 065
  406. TOPIRAMATE [Suspect]
     Active Substance: TOPIRAMATE
     Route: 065
  407. TOPIRAMATE [Suspect]
     Active Substance: TOPIRAMATE
     Route: 065
  408. TOPIRAMATE [Suspect]
     Active Substance: TOPIRAMATE
     Route: 065
  409. SULFASALAZINE [Suspect]
     Active Substance: SULFASALAZINE
     Indication: Rheumatoid arthritis
     Route: 065
  410. SULFASALAZINE [Suspect]
     Active Substance: SULFASALAZINE
     Route: 016
  411. SULFASALAZINE [Suspect]
     Active Substance: SULFASALAZINE
     Route: 058
  412. SULFASALAZINE [Suspect]
     Active Substance: SULFASALAZINE
     Route: 065
  413. SULFASALAZINE [Suspect]
     Active Substance: SULFASALAZINE
     Route: 058
  414. SULFASALAZINE [Suspect]
     Active Substance: SULFASALAZINE
     Route: 065
  415. SULFASALAZINE [Suspect]
     Active Substance: SULFASALAZINE
     Route: 065
  416. SULFASALAZINE [Suspect]
     Active Substance: SULFASALAZINE
     Route: 058
  417. SULFASALAZINE [Suspect]
     Active Substance: SULFASALAZINE
     Route: 065
  418. SULFASALAZINE [Suspect]
     Active Substance: SULFASALAZINE
     Route: 065
  419. SULFASALAZINE [Suspect]
     Active Substance: SULFASALAZINE
     Route: 058
  420. SULFASALAZINE [Suspect]
     Active Substance: SULFASALAZINE
     Route: 048
  421. SULFASALAZINE [Suspect]
     Active Substance: SULFASALAZINE
     Route: 048
  422. SULFASALAZINE [Suspect]
     Active Substance: SULFASALAZINE
     Route: 048
  423. SULFASALAZINE [Suspect]
     Active Substance: SULFASALAZINE
     Route: 065
  424. SULFASALAZINE [Suspect]
     Active Substance: SULFASALAZINE
     Route: 065
  425. SULFASALAZINE [Suspect]
     Active Substance: SULFASALAZINE
     Route: 065
  426. SULFASALAZINE [Suspect]
     Active Substance: SULFASALAZINE
     Route: 048
  427. SULFASALAZINE [Suspect]
     Active Substance: SULFASALAZINE
     Route: 058
  428. SULFASALAZINE [Suspect]
     Active Substance: SULFASALAZINE
     Route: 065
  429. SULFASALAZINE [Suspect]
     Active Substance: SULFASALAZINE
     Route: 058
  430. SULFASALAZINE [Suspect]
     Active Substance: SULFASALAZINE
     Route: 065
  431. SULFASALAZINE [Suspect]
     Active Substance: SULFASALAZINE
     Route: 048
  432. FOSAMAX [Suspect]
     Active Substance: ALENDRONATE SODIUM
     Indication: Rheumatoid arthritis
     Route: 048
  433. FOSAMAX [Suspect]
     Active Substance: ALENDRONATE SODIUM
     Route: 016
  434. FOSAMAX [Suspect]
     Active Substance: ALENDRONATE SODIUM
     Route: 065
  435. FOSAMAX [Suspect]
     Active Substance: ALENDRONATE SODIUM
     Route: 065
  436. FOSAMAX [Suspect]
     Active Substance: ALENDRONATE SODIUM
     Route: 058
  437. TRIAMCINOLONE ACETONIDE [Suspect]
     Active Substance: TRIAMCINOLONE ACETONIDE
     Indication: Rheumatoid arthritis
     Route: 014
  438. ACETAMINOPHEN\PSEUDOEPHEDRINE HYDROCHLORIDE\TRIPROLIDINE HYDROCHLORIDE [Suspect]
     Active Substance: ACETAMINOPHEN\PSEUDOEPHEDRINE HYDROCHLORIDE\TRIPROLIDINE HYDROCHLORIDE
     Indication: Rheumatoid arthritis
     Route: 065
  439. ACETAMINOPHEN\PSEUDOEPHEDRINE HYDROCHLORIDE\TRIPROLIDINE HYDROCHLORIDE [Suspect]
     Active Substance: ACETAMINOPHEN\PSEUDOEPHEDRINE HYDROCHLORIDE\TRIPROLIDINE HYDROCHLORIDE
     Route: 065
  440. ACETAMINOPHEN\PSEUDOEPHEDRINE HYDROCHLORIDE\TRIPROLIDINE HYDROCHLORIDE [Suspect]
     Active Substance: ACETAMINOPHEN\PSEUDOEPHEDRINE HYDROCHLORIDE\TRIPROLIDINE HYDROCHLORIDE
     Route: 065
  441. ACETAMINOPHEN\PSEUDOEPHEDRINE HYDROCHLORIDE\TRIPROLIDINE HYDROCHLORIDE [Suspect]
     Active Substance: ACETAMINOPHEN\PSEUDOEPHEDRINE HYDROCHLORIDE\TRIPROLIDINE HYDROCHLORIDE
     Route: 065
  442. DICLOFENAC SODIUM [Suspect]
     Active Substance: DICLOFENAC SODIUM
     Indication: Product used for unknown indication
     Route: 058
  443. DICLOFENAC SODIUM [Suspect]
     Active Substance: DICLOFENAC SODIUM
     Route: 065
  444. DICLOFENAC SODIUM [Suspect]
     Active Substance: DICLOFENAC SODIUM
     Route: 065
  445. DICLOFENAC SODIUM [Suspect]
     Active Substance: DICLOFENAC SODIUM
     Route: 065
  446. IODINE [Suspect]
     Active Substance: IODINE
     Indication: Product used for unknown indication
     Route: 065
  447. PSEUDOEPHEDRINE HYDROCHLORIDE [Suspect]
     Active Substance: PSEUDOEPHEDRINE HYDROCHLORIDE
     Indication: Rheumatoid arthritis
     Route: 065
  448. PSEUDOEPHEDRINE HYDROCHLORIDE [Suspect]
     Active Substance: PSEUDOEPHEDRINE HYDROCHLORIDE
     Route: 065
  449. PSEUDOEPHEDRINE HYDROCHLORIDE [Suspect]
     Active Substance: PSEUDOEPHEDRINE HYDROCHLORIDE
     Route: 065
  450. PSEUDOEPHEDRINE HYDROCHLORIDE [Suspect]
     Active Substance: PSEUDOEPHEDRINE HYDROCHLORIDE
     Route: 065
  451. COSENTYX [Concomitant]
     Active Substance: SECUKINUMAB
     Indication: Product used for unknown indication
     Route: 065

REACTIONS (123)
  - Fall [Fatal]
  - Weight increased [Fatal]
  - Blood cholesterol increased [Fatal]
  - Psoriatic arthropathy [Fatal]
  - Bursitis [Fatal]
  - Obesity [Fatal]
  - Facet joint syndrome [Fatal]
  - Drug ineffective [Fatal]
  - Epilepsy [Fatal]
  - Condition aggravated [Fatal]
  - Rheumatic fever [Fatal]
  - Rheumatoid arthritis [Fatal]
  - Duodenal ulcer perforation [Fatal]
  - Lung disorder [Fatal]
  - Arthropathy [Fatal]
  - Lip dry [Fatal]
  - Dizziness [Fatal]
  - Night sweats [Fatal]
  - Pain [Fatal]
  - Musculoskeletal pain [Fatal]
  - Adverse reaction [Fatal]
  - Joint swelling [Fatal]
  - Abdominal pain upper [Fatal]
  - Abdominal discomfort [Fatal]
  - Hepatitis [Fatal]
  - Injection site reaction [Fatal]
  - Urticaria [Fatal]
  - Product quality issue [Fatal]
  - Pericarditis [Fatal]
  - Hypersensitivity [Fatal]
  - Gastrooesophageal reflux disease [Fatal]
  - Pain in extremity [Fatal]
  - Paraesthesia [Fatal]
  - Contraindicated product administered [Fatal]
  - Gastrointestinal disorder [Fatal]
  - Mobility decreased [Fatal]
  - Folliculitis [Fatal]
  - Muscular weakness [Fatal]
  - Inflammation [Fatal]
  - Sleep disorder [Fatal]
  - Dry mouth [Fatal]
  - Hypercholesterolaemia [Fatal]
  - Irritable bowel syndrome [Fatal]
  - Muscle spasms [Fatal]
  - Hepatic enzyme increased [Fatal]
  - Treatment failure [Fatal]
  - Insomnia [Fatal]
  - Wound infection [Fatal]
  - Hand deformity [Fatal]
  - Dyspnoea [Fatal]
  - Diarrhoea [Fatal]
  - Drug-induced liver injury [Fatal]
  - General physical health deterioration [Fatal]
  - Onychomycosis [Fatal]
  - Intentional product use issue [Fatal]
  - Osteoarthritis [Fatal]
  - Anti-cyclic citrullinated peptide antibody positive [Fatal]
  - Fibromyalgia [Fatal]
  - Blepharospasm [Fatal]
  - Exposure during pregnancy [Fatal]
  - Impaired healing [Fatal]
  - Taste disorder [Fatal]
  - Injury [Fatal]
  - Peripheral swelling [Fatal]
  - Hypoaesthesia [Fatal]
  - Arthralgia [Fatal]
  - Decreased appetite [Fatal]
  - Confusional state [Fatal]
  - Peripheral venous disease [Fatal]
  - Live birth [Fatal]
  - Off label use [Fatal]
  - Muscle injury [Fatal]
  - Breast cancer stage III [Fatal]
  - Maternal exposure during pregnancy [Fatal]
  - Type 2 diabetes mellitus [Fatal]
  - Wheezing [Fatal]
  - Gait inability [Fatal]
  - Therapeutic product effect decreased [Fatal]
  - Nasopharyngitis [Fatal]
  - Neck pain [Fatal]
  - Back injury [Fatal]
  - Musculoskeletal stiffness [Fatal]
  - Migraine [Fatal]
  - Rash [Fatal]
  - C-reactive protein increased [Fatal]
  - Malaise [Fatal]
  - Pemphigus [Fatal]
  - Liver injury [Fatal]
  - Depression [Fatal]
  - Alopecia [Fatal]
  - Onychomadesis [Fatal]
  - Synovitis [Fatal]
  - Helicobacter infection [Fatal]
  - Headache [Fatal]
  - Product label confusion [Fatal]
  - Glossodynia [Fatal]
  - Nail disorder [Fatal]
  - Drug intolerance [Fatal]
  - Nausea [Fatal]
  - C-reactive protein abnormal [Fatal]
  - Lower respiratory tract infection [Fatal]
  - Memory impairment [Fatal]
  - Joint range of motion decreased [Fatal]
  - Systemic lupus erythematosus [Fatal]
  - Fatigue [Fatal]
  - Stomatitis [Fatal]
  - Vomiting [Fatal]
  - Coeliac disease [Fatal]
  - Pneumonia [Fatal]
  - Abdominal distension [Fatal]
  - Liver function test increased [Fatal]
  - Swelling [Fatal]
  - Grip strength decreased [Fatal]
  - Hypertension [Fatal]
  - Wound [Fatal]
  - Blister [Fatal]
  - Ill-defined disorder [Fatal]
  - Drug hypersensitivity [Fatal]
  - Asthenia [Fatal]
  - Finger deformity [Fatal]
  - Dyspepsia [Fatal]
  - Product use in unapproved indication [Fatal]
  - Infusion related reaction [Fatal]
